FAERS Safety Report 5884120-0 (Version None)
Quarter: 2008Q3

REPORT INFORMATION
  Report Type: 
  Country: None (occurrence: None)
  Receive Date: 20080915
  Receipt Date: 20080902
  Transmission Date: 20090109
  Serious: Yes (Hospitalization)
  Sender: FDA-Public Use
  Company Number: PHEH1995US03271

PATIENT
  Sex: Female

DRUGS (11)
  1. NEORAL [Suspect]
     Dosage: VARIABLE
     Route: 048
     Dates: start: 19950816, end: 19950906
  2. GANCYCLOVIR (GANCICLOVIR) [Concomitant]
     Route: 042
  3. NYSTATIN [Concomitant]
     Dosage: 1,500,000 UNITS
     Route: 065
  4. PEPCID [Concomitant]
     Route: 048
  5. IMURAN [Concomitant]
     Route: 048
  6. MAGNESIUM PLUS (MAGNESIUM) [Concomitant]
     Route: 048
  7. OSCAL WITH VITAMIN D (CALCIUM CARBONATE) [Concomitant]
     Route: 048
  8. REGULAR INSULIN [Concomitant]
     Dosage: 2-8 UNITS
     Route: 058
  9. PHYTONADIONE [Concomitant]
     Route: 058
  10. POTASSIUM CHLORIDE [Concomitant]
     Route: 042
  11. MORPHINE SULFATE [Concomitant]
     Dosage: 1-2 MG
     Route: 042

REACTIONS (6)
  - DISORIENTATION [None]
  - DYSKINESIA [None]
  - EMOTIONAL DISTRESS [None]
  - HEPATIC ENZYME INCREASED [None]
  - MUSCULOSKELETAL DISCOMFORT [None]
  - TRANSPLANT REJECTION [None]
